FAERS Safety Report 4919685-6 (Version None)
Quarter: 2006Q1

REPORT INFORMATION
  Report Type: 
  Country: None (occurrence: None)
  Receive Date: 20060212
  Receipt Date: 20060209
  Transmission Date: 20060701
  Serious: Yes (Life-Threatening, Hospitalization)
  Sender: FDA-Public Use
  Company Number: 2006019641

PATIENT
  Age: 24 Year
  Sex: Female

DRUGS (1)
  1. DINOPROSTONE GEL (DINOPROSTONE) [Suspect]
     Indication: INDUCED LABOUR
     Dosage: (ONCE), VAGINAL
     Route: 067
     Dates: start: 20050603, end: 20050603

REACTIONS (4)
  - CAESAREAN SECTION [None]
  - DISSEMINATED INTRAVASCULAR COAGULATION [None]
  - DRUG EXPOSURE DURING PREGNANCY [None]
  - HYSTERECTOMY [None]
